FAERS Safety Report 8623947-9 (Version None)
Quarter: 2012Q3

REPORT INFORMATION
  Report Type: 
  Country: None (occurrence: None)
  Receive Date: 20120827
  Receipt Date: 20120824
  Transmission Date: 20120928
  Serious: Yes (Other)
  Sender: FDA-Public Use
  Company Number: PHEH2012US016662

PATIENT
  Sex: Male
  Weight: 99.773 kg

DRUGS (7)
  1. PROVIGIL [Concomitant]
     Dosage: 100 MG, UNK
  2. GILENYA [Suspect]
     Dosage: 0.5 MG, QD
     Route: 048
  3. RITALIN [Concomitant]
     Dosage: 10 MG, UNK
  4. TRICOR [Concomitant]
     Dosage: 145 MG, UNK
  5. TRILIPIX [Concomitant]
     Dosage: 45 MG, UNK
  6. TEGRETOL [Concomitant]
     Dosage: 100 MG, UNK
  7. PRAVASTATIN [Concomitant]
     Dosage: 10 MG, UNK

REACTIONS (4)
  - HEART RATE DECREASED [None]
  - FATIGUE [None]
  - CONFUSIONAL STATE [None]
  - CHEST PAIN [None]
